FAERS Safety Report 16694989 (Version 2)
Quarter: 2019Q3

REPORT INFORMATION
  Report Type: Spontaneous
  Country: US (occurrence: US)
  Receive Date: 20190812
  Receipt Date: 20190917
  Transmission Date: 20191004
  Serious: Yes (Hospitalization)
  Sender: FDA-Public Use
  Company Number: US-ACTELION-A-US2019-194175

PATIENT
  Sex: Female
  Weight: 61.22 kg

DRUGS (2)
  1. DILTIAZEM. [Concomitant]
     Active Substance: DILTIAZEM
  2. OPSUMIT [Suspect]
     Active Substance: MACITENTAN
     Indication: PULMONARY HYPERTENSION
     Dosage: 10 MG, QD
     Route: 048

REACTIONS (5)
  - Joint swelling [Unknown]
  - Bowel movement irregularity [Unknown]
  - Tooth extraction [Unknown]
  - Oxygen saturation abnormal [Unknown]
  - Faeces discoloured [Unknown]
